FAERS Safety Report 19768534 (Version 1)
Quarter: 2021Q3

REPORT INFORMATION
  Report Type: Report from Study
  Country: None (occurrence: FR)
  Receive Date: 20210830
  Receipt Date: 20210830
  Transmission Date: 20211014
  Serious: Yes (Hospitalization, Other)
  Sender: FDA-Public Use
  Company Number: FR-ABBVIE-21K-056-4058353-00

PATIENT
  Sex: Female
  Weight: 74 kg

DRUGS (1)
  1. UPADACITINIB [Suspect]
     Active Substance: UPADACITINIB
     Indication: DERMATITIS ATOPIC
     Route: 048

REACTIONS (2)
  - Medical device site joint infection [Not Recovered/Not Resolved]
  - Shoulder arthroplasty [Unknown]

NARRATIVE: CASE EVENT DATE: 20210816
